FAERS Safety Report 15310138 (Version 1)
Quarter: 2018Q3

REPORT INFORMATION
  Report Type: Spontaneous
  Country: US (occurrence: US)
  Receive Date: 20180813
  Receipt Date: 20180813
  Transmission Date: 20181010
  Serious: No
  Sender: FDA-Public Use
  Company Number: None

PATIENT
  Age: 42 Year
  Sex: Male
  Weight: 121.5 kg

DRUGS (1)
  1. ALPRAZOLAM 2MG TABLETS [Suspect]
     Active Substance: ALPRAZOLAM
     Indication: ANXIETY
     Dosage: ?          QUANTITY:2 TABLET(S);?
     Route: 048
     Dates: start: 20180512, end: 20180608

REACTIONS (4)
  - Product substitution issue [None]
  - Drug effect decreased [None]
  - Adverse drug reaction [None]
  - Product quality issue [None]

NARRATIVE: CASE EVENT DATE: 20180516
